FAERS Safety Report 8895061 (Version 5)
Quarter: 2013Q2

REPORT INFORMATION
  Report Type: Report from Study
  Country: US (occurrence: US)
  Receive Date: 20121107
  Receipt Date: 20130508
  Transmission Date: 20140414
  Serious: Yes (Other)
  Sender: FDA-Public Use
  Company Number: US-JNJFOC-20121101807

PATIENT
  Age: 65 Year
  Sex: Female
  Weight: 82.56 kg

DRUGS (18)
  1. REMICADE [Suspect]
     Indication: PSORIATIC ARTHROPATHY
     Route: 042
     Dates: start: 20120419
  2. REMICADE [Suspect]
     Indication: PSORIATIC ARTHROPATHY
     Route: 042
     Dates: start: 20120801
  3. REMICADE [Suspect]
     Indication: PSORIATIC ARTHROPATHY
     Route: 042
     Dates: start: 201205
  4. REMICADE [Suspect]
     Indication: PSORIATIC ARTHROPATHY
     Route: 042
     Dates: end: 20120724
  5. REMICADE [Suspect]
     Indication: PSORIASIS
     Route: 042
     Dates: start: 201205
  6. REMICADE [Suspect]
     Indication: PSORIASIS
     Route: 042
     Dates: start: 20120419
  7. REMICADE [Suspect]
     Indication: PSORIASIS
     Route: 042
     Dates: start: 20120801
  8. REMICADE [Suspect]
     Indication: PSORIASIS
     Route: 042
     Dates: end: 20120724
  9. STELARA [Suspect]
     Indication: PSORIASIS
     Route: 058
     Dates: start: 20111223
  10. STELARA [Suspect]
     Indication: PSORIASIS
     Route: 058
     Dates: start: 20110628
  11. STELARA [Suspect]
     Indication: PSORIASIS
     Route: 058
     Dates: start: 20120319
  12. STELARA [Suspect]
     Indication: PSORIASIS
     Route: 058
     Dates: end: 20120419
  13. METHOTREXATE [Concomitant]
     Route: 048
     Dates: start: 20120724
  14. TACLONEX [Concomitant]
  15. CORTICOSTEROID [Concomitant]
  16. PLAQUENIL [Concomitant]
  17. IMURAN [Concomitant]
  18. SYSTEMIC CORTICOSTEROIDS [Concomitant]

REACTIONS (1)
  - Pulmonary mass [Recovered/Resolved with Sequelae]
